FAERS Safety Report 11945331 (Version 3)
Quarter: 2016Q1

REPORT INFORMATION
  Report Type: Spontaneous
  Country: BR (occurrence: BR)
  Receive Date: 20160125
  Receipt Date: 20160310
  Transmission Date: 20160526
  Serious: Yes (Hospitalization, Other)
  Sender: FDA-Public Use
  Company Number: BR-PFIZER INC-2014237859

PATIENT
  Age: 60 Year
  Sex: Female
  Weight: 40 kg

DRUGS (3)
  1. FRONTAL [Suspect]
     Active Substance: ALPRAZOLAM
     Indication: ANXIETY
     Dosage: UNK
  2. FRONTAL [Suspect]
     Active Substance: ALPRAZOLAM
     Indication: AGITATION
  3. FRONTAL [Suspect]
     Active Substance: ALPRAZOLAM
     Indication: DEPRESSION
     Dosage: 5MG WHEN IT WAS VERY MUCH ATTACKED, 3.5MG WHEN LESS ATTACKED AND 2.5MG WHEN SHE WAS AGITATED
     Route: 048
     Dates: start: 2001

REACTIONS (31)
  - Visual impairment [Not Recovered/Not Resolved]
  - Retching [Recovered/Resolved]
  - Drug ineffective [Recovered/Resolved]
  - Drug effect variable [Unknown]
  - Vision blurred [Recovered/Resolved]
  - Hypertension [Recovered/Resolved]
  - Product physical issue [Unknown]
  - Gastrointestinal pain [Recovered/Resolved]
  - Malaise [Unknown]
  - Weight decreased [Unknown]
  - Body height decreased [Not Recovered/Not Resolved]
  - Exostosis [Unknown]
  - Blindness [Not Recovered/Not Resolved]
  - Abdominal discomfort [Not Recovered/Not Resolved]
  - Dizziness [Not Recovered/Not Resolved]
  - Diarrhoea [Recovered/Resolved]
  - Feeling abnormal [Recovered/Resolved]
  - Eating disorder [Unknown]
  - Scoliosis [Unknown]
  - Intervertebral disc protrusion [Unknown]
  - Vomiting [Recovered/Resolved]
  - Throat irritation [Recovered/Resolved]
  - Burning sensation [Recovered/Resolved]
  - Nausea [Recovered/Resolved]
  - Feeling hot [Recovered/Resolved]
  - Dyspepsia [Recovered/Resolved]
  - Tremor [Recovered/Resolved]
  - Gastrooesophageal reflux disease [Not Recovered/Not Resolved]
  - Product quality issue [Unknown]
  - Heart rate increased [Recovered/Resolved]
  - Decreased appetite [Unknown]

NARRATIVE: CASE EVENT DATE: 201601
